FAERS Safety Report 8218175-5 (Version None)
Quarter: 2012Q1

REPORT INFORMATION
  Report Type: 
  Country: None (occurrence: None)
  Receive Date: 20120319
  Receipt Date: 20120312
  Transmission Date: 20120608
  Serious: Yes (Hospitalization)
  Sender: FDA-Public Use
  Company Number: CA-ROCHE-1048906

PATIENT
  Sex: Female
  Weight: 79.904 kg

DRUGS (8)
  1. HUMULIN INSULIN [Concomitant]
  2. METFORMIN HYDROCHLORIDE [Concomitant]
  3. HYDROCHLOROTHIAZIDE [Concomitant]
  4. DIPHENHYDRAMINE HCL [Concomitant]
     Indication: PREMEDICATION
     Route: 048
     Dates: start: 20120209, end: 20120209
  5. MABTHERA [Suspect]
     Indication: MANTLE CELL LYMPHOMA
     Route: 042
     Dates: start: 20111007, end: 20120209
  6. ZOLOFT [Concomitant]
  7. LIPITOR [Concomitant]
  8. ACETAMINOPHEN [Concomitant]
     Indication: PREMEDICATION
     Route: 048
     Dates: start: 20120209, end: 20120209

REACTIONS (1)
  - THROMBOSIS [None]
